FAERS Safety Report 15895937 (Version 2)
Quarter: 2019Q2

REPORT INFORMATION
  Report Type: Spontaneous
  Country: US (occurrence: US)
  Receive Date: 20190131
  Receipt Date: 20190422
  Transmission Date: 20190711
  Serious: No
  Sender: FDA-Public Use
  Company Number: US-CELGENEUS-USA-20190108633

PATIENT
  Age: 58 Year
  Sex: Female

DRUGS (2)
  1. OTEZLA [Suspect]
     Active Substance: APREMILAST
     Dosage: 60 MILLIGRAM
     Route: 048
     Dates: start: 20190103
  2. OTEZLA [Suspect]
     Active Substance: APREMILAST
     Indication: PSORIATIC ARTHROPATHY
     Dosage: TITRATION PACK 10/20/30 MG
     Route: 048
     Dates: start: 20181231

REACTIONS (5)
  - Depressed mood [Unknown]
  - Adverse drug reaction [Unknown]
  - Diarrhoea [Unknown]
  - Nausea [Unknown]
  - Irritability [Unknown]

NARRATIVE: CASE EVENT DATE: 20181231
